FAERS Safety Report 10048847 (Version 1)
Quarter: 2014Q1

REPORT INFORMATION
  Report Type: Spontaneous
  Country: US (occurrence: US)
  Receive Date: 20140331
  Receipt Date: 20140331
  Transmission Date: 20141002
  Serious: No
  Sender: FDA-Public Use
  Company Number: US-009507513-1403USA009630

PATIENT
  Age: 56 Year
  Sex: Female

DRUGS (1)
  1. REMERON [Suspect]
     Indication: DEPRESSION
     Dosage: UNK
     Route: 048
     Dates: start: 201308

REACTIONS (4)
  - White blood cell count decreased [Unknown]
  - Insomnia [Unknown]
  - Headache [Unknown]
  - Adverse event [Unknown]
